FAERS Safety Report 22248182 (Version 1)
Quarter: 2023Q2

REPORT INFORMATION
  Report Type: Spontaneous
  Country: US (occurrence: US)
  Receive Date: 20230425
  Receipt Date: 20230425
  Transmission Date: 20230722
  Serious: No
  Sender: FDA-Public Use
  Company Number: US-UNITED THERAPEUTICS-UNT-2023-010308

PATIENT
  Age: 64 Year
  Sex: Female
  Weight: 77.098 kg

DRUGS (3)
  1. REMODULIN [Suspect]
     Active Substance: TREPROSTINIL
     Indication: Pulmonary arterial hypertension
     Dosage: 0.012 ?G/KG, CONTINUING (SELF-FILLED REMUNITY; FILL WITH 2.2 ML PER CASSETTE, AT A RATE OF 23 MCL PE
     Route: 058
  2. REMODULIN [Suspect]
     Active Substance: TREPROSTINIL
     Dosage: UNK, CONTINUING
     Route: 058
     Dates: start: 20230406
  3. ELIQUIS [Concomitant]
     Active Substance: APIXABAN
     Indication: Product used for unknown indication
     Dosage: UNK
     Route: 065

REACTIONS (6)
  - Infusion site erythema [Unknown]
  - Infusion site discomfort [Unknown]
  - Device power source issue [Unknown]
  - Device wireless communication issue [Unknown]
  - Device failure [Unknown]
  - Device temperature issue [Unknown]

NARRATIVE: CASE EVENT DATE: 20230401
